FAERS Safety Report 16431263 (Version 2)
Quarter: 2019Q2

REPORT INFORMATION
  Report Type: Spontaneous
  Country: DE (occurrence: DE)
  Receive Date: 20190614
  Receipt Date: 20190625
  Transmission Date: 20190711
  Serious: Yes (Hospitalization, Other)
  Sender: FDA-Public Use
  Company Number: DE-009507513-2007SP019168

PATIENT
  Age: 35 Year
  Sex: Female
  Weight: 66 kg

DRUGS (3)
  1. GONADOTROPIN, CHORIONIC [Suspect]
     Active Substance: CHORIOGONADOTROPIN ALFA
     Indication: OVULATION INDUCTION
     Dosage: 10000 IU
  2. GONADOTROPIN, CHORIONIC [Suspect]
     Active Substance: CHORIOGONADOTROPIN ALFA
     Dosage: 750 IU WAS ADMINISTERED THREE TIMES UNTIL 6 DAYS AFTER TRANSFER
  3. PROGESTERONE. [Suspect]
     Active Substance: PROGESTERONE
     Indication: OVULATION INDUCTION
     Dosage: 200 MG (3X)
     Route: 067

REACTIONS (4)
  - Subclavian vein thrombosis [Unknown]
  - Jugular vein thrombosis [Unknown]
  - Maternal exposure before pregnancy [Recovered/Resolved]
  - Ovarian hyperstimulation syndrome [Unknown]
